FAERS Safety Report 19163909 (Version 1)
Quarter: 2021Q2

REPORT INFORMATION
  Report Type: Spontaneous
  Country: AU (occurrence: AU)
  Receive Date: 20210421
  Receipt Date: 20210421
  Transmission Date: 20210717
  Serious: Yes (Life-Threatening, Hospitalization)
  Sender: FDA-Public Use
  Company Number: AU-MYLANLABS-2021M1023472

PATIENT
  Age: 1 Year
  Sex: Male

DRUGS (12)
  1. FENTANYL. [Suspect]
     Active Substance: FENTANYL
     Dosage: 5 MICROGRAM
     Route: 042
  2. NALOXONE [Concomitant]
     Active Substance: NALOXONE
     Indication: SEDATION COMPLICATION
     Dosage: 10 MICROGRAM 1MCG/KG
     Route: 042
  3. FENTANYL. [Suspect]
     Active Substance: FENTANYL
     Indication: PROCEDURAL PAIN
     Dosage: 75 MICROGRAM
     Route: 042
  4. PARACETAMOL [Concomitant]
     Active Substance: ACETAMINOPHEN
     Indication: PAIN
     Dosage: UNK
     Route: 042
  5. BENZYLPENICILLIN [Concomitant]
     Active Substance: PENICILLIN G
     Indication: ANTIBIOTIC THERAPY
     Dosage: 500 MILLIGRAM, Q4D BENZYLPENICILLIN 500 MG IV FOUR TIMES DAILY..
     Route: 042
  6. CIPROFLOXACIN. [Concomitant]
     Active Substance: CIPROFLOXACIN
     Indication: ANTIBIOTIC THERAPY
     Dosage: EAR DROPS
     Route: 065
  7. ADRENALINE                         /00003901/ [Concomitant]
     Active Substance: EPINEPHRINE
     Indication: PRODUCT USED FOR UNKNOWN INDICATION
     Dosage: UNK
     Route: 065
  8. TRAMADOL. [Suspect]
     Active Substance: TRAMADOL
     Indication: PROCEDURAL PAIN
     Dosage: 2 MILLIGRAM/KILOGRAM 20 MG
     Route: 065
  9. ROPIVACAINE. [Concomitant]
     Active Substance: ROPIVACAINE HYDROCHLORIDE
     Indication: PRODUCT USED FOR UNKNOWN INDICATION
     Dosage: UNK
     Route: 065
  10. MORPHINE [Suspect]
     Active Substance: MORPHINE
     Indication: PROCEDURAL PAIN
     Dosage: 20 MICROGRAM/KILOGRAM, QH
     Route: 042
  11. CEFAZOLIN [Concomitant]
     Active Substance: CEFAZOLIN
     Indication: PRODUCT USED FOR UNKNOWN INDICATION
     Dosage: 250 MILLIGRAM TWO DOSES OF 250 MG AT INDUCTION
     Route: 065
  12. CEFAZOLIN [Concomitant]
     Active Substance: CEFAZOLIN
     Dosage: 250 MILLIGRAM 250 MG 1.5 H LATER
     Route: 065

REACTIONS (7)
  - Sedation [Recovered/Resolved]
  - Condition aggravated [Recovering/Resolving]
  - Aspiration [Recovering/Resolving]
  - Metabolic acidosis [Recovering/Resolving]
  - Respiratory distress [Recovering/Resolving]
  - Incorrect product administration duration [Unknown]
  - Respiratory acidosis [Recovering/Resolving]
